FAERS Safety Report 5453680-6 (Version None)
Quarter: 2007Q3

REPORT INFORMATION
  Report Type: 
  Country: None (occurrence: None)
  Receive Date: 20070917
  Receipt Date: 20070907
  Transmission Date: 20080115
  Serious: Yes (Other)
  Sender: FDA-Public Use
  Company Number: DE-ABBOTT-07P-062-0414761-00

PATIENT
  Sex: Female

DRUGS (2)
  1. EMESTAR PLUS [Suspect]
     Indication: DRUG USE FOR UNKNOWN INDICATION
     Route: 048
     Dates: start: 20060113, end: 20070403
  2. EMESTAR MONO [Suspect]
     Indication: DRUG USE FOR UNKNOWN INDICATION
     Route: 048
     Dates: start: 20070403, end: 20070507

REACTIONS (1)
  - PAIN IN EXTREMITY [None]
